FAERS Safety Report 13563415 (Version 3)
Quarter: 2018Q2

REPORT INFORMATION
  Report Type: Spontaneous
  Country: US (occurrence: US)
  Receive Date: 20170519
  Receipt Date: 20180510
  Transmission Date: 20180711
  Serious: No
  Sender: FDA-Public Use
  Company Number: US-PFIZER INC-2017221609

PATIENT
  Age: 45 Year
  Sex: Female
  Weight: 131 kg

DRUGS (1)
  1. EUCRISA [Suspect]
     Active Substance: CRISABOROLE
     Indication: ECZEMA
     Dosage: APPLY A THIN LAYER TO AFFECTED AREA TOPICALLY AROUND HER EYES, 2X/DAY
     Route: 061
     Dates: start: 20170516

REACTIONS (1)
  - Application site pain [Unknown]

NARRATIVE: CASE EVENT DATE: 20170516
